FAERS Safety Report 24769917 (Version 2)
Quarter: 2025Q1

REPORT INFORMATION
  Report Type: Spontaneous
  Country: US (occurrence: US)
  Receive Date: 20241224
  Receipt Date: 20250103
  Transmission Date: 20250409
  Serious: No
  Sender: TORRENT PHARMA INC.
  Company Number: US-TORRENT-00013908

PATIENT
  Sex: Male
  Weight: 58 kg

DRUGS (1)
  1. CITALOPRAM [Suspect]
     Active Substance: CITALOPRAM
     Indication: Borderline personality disorder
     Dosage: 50 MG ONCE IN THE MORNING
     Route: 065
     Dates: start: 2011, end: 2011

REACTIONS (4)
  - Adverse reaction [Unknown]
  - Insomnia [Unknown]
  - Idiopathic environmental intolerance [Unknown]
  - Nausea [Unknown]
